FAERS Safety Report 6207631-7 (Version None)
Quarter: 2009Q2

REPORT INFORMATION
  Report Type: 
  Country: None (occurrence: None)
  Receive Date: 20090526
  Receipt Date: 20090512
  Transmission Date: 20091009
  Serious: Yes (Life-Threatening, Hospitalization, Other)
  Sender: FDA-Public Use
  Company Number: 2009AL003443

PATIENT
  Age: 65 Year
  Sex: Female

DRUGS (5)
  1. DICLOXACILLIN [Suspect]
     Indication: BACK PAIN
     Dosage: 75 MG; BID; PO
     Route: 048
     Dates: end: 20090422
  2. RANITIDINE [Concomitant]
  3. GAVISCON [Concomitant]
  4. TRAMADOL HCL [Concomitant]
  5. ATENOLOL [Concomitant]

REACTIONS (2)
  - GASTRIC ULCER PERFORATION [None]
  - RENAL FAILURE ACUTE [None]
